FAERS Safety Report 5972998-1 (Version None)
Quarter: 2008Q4

REPORT INFORMATION
  Report Type: 
  Country: None (occurrence: None)
  Receive Date: 20081201
  Receipt Date: 20081124
  Transmission Date: 20090506
  Serious: Yes (Other)
  Sender: FDA-Public Use
  Company Number: PHBS2008FR06320

PATIENT
  Age: 57 Year
  Sex: Male

DRUGS (1)
  1. IMATINIB MESYLATE [Suspect]
     Indication: CHRONIC MYELOID LEUKAEMIA (IN REMISSION)
     Dosage: 400 MG/DAY

REACTIONS (6)
  - CELL DEATH [None]
  - DERMATITIS BULLOUS [None]
  - HYPERTRICHOSIS [None]
  - PORPHYRIA NON-ACUTE [None]
  - SKIN FRAGILITY [None]
  - SKIN HYPERPIGMENTATION [None]
